FAERS Safety Report 23537005 (Version 1)
Quarter: 2024Q1

REPORT INFORMATION
  Report Type: Spontaneous
  Country: FR (occurrence: FR)
  Receive Date: 20240219
  Receipt Date: 20240219
  Transmission Date: 20240409
  Serious: Yes (Hospitalization)
  Sender: FDA-Public Use
  Company Number: None

PATIENT
  Age: 21 Year
  Sex: Female
  Weight: 74 kg

DRUGS (3)
  1. VENLAFAXINE [Suspect]
     Active Substance: VENLAFAXINE HYDROCHLORIDE
     Indication: Intentional overdose
     Dosage: 75MG X 60CP
     Route: 048
     Dates: start: 20230924, end: 20230924
  2. MIANSERIN [Suspect]
     Active Substance: MIANSERIN
     Indication: Intentional overdose
     Dosage: 10MG X 68CP, MIANSERINE (CHLORHYDRATE DE)
     Route: 048
     Dates: start: 20230924, end: 20230924
  3. ALPRAZOLAM [Suspect]
     Active Substance: ALPRAZOLAM
     Indication: Intentional overdose
     Dosage: 0.5MG X 90CP
     Route: 048
     Dates: start: 20230924, end: 20230924

REACTIONS (2)
  - Altered state of consciousness [Recovered/Resolved]
  - Poisoning deliberate [Recovered/Resolved]

NARRATIVE: CASE EVENT DATE: 20230924
